FAERS Safety Report 5738565-X (Version None)
Quarter: 2008Q2

REPORT INFORMATION
  Report Type: 
  Country: None (occurrence: None)
  Receive Date: 20080513
  Receipt Date: 20080513
  Transmission Date: 20081010
  Serious: Yes (Other)
  Sender: FDA-Public Use
  Company Number: None

PATIENT
  Sex: Female
  Weight: 65.7716 kg

DRUGS (2)
  1. GAMUNEX [Suspect]
     Indication: SYSTEMIC SCLEROSIS
     Dosage: 65GM DAILY X 2 DOSES IV DRIP
     Route: 041
     Dates: start: 20080319, end: 20080320
  2. GAMUNEX [Suspect]

REACTIONS (1)
  - HAEMOLYTIC ANAEMIA [None]
